FAERS Safety Report 5404918-2 (Version None)
Quarter: 2007Q3

REPORT INFORMATION
  Report Type: 
  Country: None (occurrence: None)
  Receive Date: 20070803
  Receipt Date: 20070802
  Transmission Date: 20080115
  Serious: Yes (Hospitalization)
  Sender: FDA-Public Use
  Company Number: US-BRISTOL-MYERS SQUIBB COMPANY-13865795

PATIENT
  Age: 8 Decade
  Sex: Female
  Weight: 57 kg

DRUGS (6)
  1. COUMADIN [Suspect]
     Indication: ATRIAL FIBRILLATION
     Dosage: 2 MG FOR 6 DAYS AND 4 MG FOR 1 DAY
  2. LIPITOR [Concomitant]
  3. ATENOLOL [Concomitant]
  4. FUROSEMIDE [Concomitant]
  5. SYNTHROID [Concomitant]
  6. ALLOPURINOL + BENZBROMARONE [Concomitant]

REACTIONS (2)
  - DIVERTICULITIS [None]
  - INTERNATIONAL NORMALISED RATIO DECREASED [None]
